FAERS Safety Report 16440224 (Version 1)
Quarter: 2019Q2

REPORT INFORMATION
  Report Type: Spontaneous
  Country: SE (occurrence: SE)
  Receive Date: 20190617
  Receipt Date: 20190617
  Transmission Date: 20190711
  Serious: Yes (Hospitalization)
  Sender: FDA-Public Use
  Company Number: SE-B.I. PHARMACEUTICALS,INC./RIDGEFIELD-2019-12-001868

PATIENT
  Age: 60 Year
  Sex: Male

DRUGS (1)
  1. JARDIANCE [Suspect]
     Active Substance: EMPAGLIFLOZIN
     Indication: TYPE 2 DIABETES MELLITUS
     Dosage: 10 1X1 FILMDRAGERAD TABLETT
     Route: 048
     Dates: start: 20181016, end: 20190329

REACTIONS (1)
  - Fournier^s gangrene [Not Recovered/Not Resolved]

NARRATIVE: CASE EVENT DATE: 20190405
